FAERS Safety Report 15448338 (Version 1)
Quarter: 2018Q3

REPORT INFORMATION
  Report Type: Spontaneous
  Country: US (occurrence: US)
  Receive Date: 20180926
  Receipt Date: 20180926
  Transmission Date: 20181010
  Serious: Yes (Other)
  Sender: FDA-Public Use
  Company Number: None

PATIENT
  Age: 79 Year
  Sex: Female
  Weight: 58.5 kg

DRUGS (9)
  1. VERZENIO [Suspect]
     Active Substance: ABEMACICLIB
     Indication: BREAST CANCER
     Route: 048
     Dates: start: 20180830, end: 20180926
  2. ADVIL [Concomitant]
     Active Substance: IBUPROFEN
  3. ONDANSETRON [Concomitant]
     Active Substance: ONDANSETRON
  4. AMBIEN [Concomitant]
     Active Substance: ZOLPIDEM TARTRATE
  5. EXEMESTANE. [Concomitant]
     Active Substance: EXEMESTANE
  6. FASLODEX [Concomitant]
     Active Substance: FULVESTRANT
  7. VITAMIN C [Concomitant]
     Active Substance: ASCORBIC ACID
  8. ASPIRIN. [Concomitant]
     Active Substance: ASPIRIN
  9. AMLODIPINE [Concomitant]
     Active Substance: AMLODIPINE BESYLATE

REACTIONS (3)
  - Diarrhoea [None]
  - Therapy cessation [None]
  - Weight decreased [None]

NARRATIVE: CASE EVENT DATE: 20180926
